FAERS Safety Report 8763250 (Version 2)
Quarter: 2013Q1

REPORT INFORMATION
  Report Type: Spontaneous
  Country: US (occurrence: US)
  Receive Date: 20120831
  Receipt Date: 20130313
  Transmission Date: 20140127
  Serious: Yes (Hospitalization)
  Sender: FDA-Public Use
  Company Number: US-BAYER-2012-089027

PATIENT
  Age: 21 Year
  Sex: Female

DRUGS (2)
  1. GIANVI [Suspect]
  2. YAZ [Suspect]

REACTIONS (1)
  - Pulmonary embolism [Not Recovered/Not Resolved]
